FAERS Safety Report 6423056-3 (Version None)
Quarter: 2009Q4

REPORT INFORMATION
  Report Type: 
  Country: None (occurrence: None)
  Receive Date: 20091102
  Receipt Date: 20091021
  Transmission Date: 20100525
  Serious: Yes (Other)
  Sender: FDA-Public Use
  Company Number: CA-JNJFOC-20090302929

PATIENT
  Sex: Female

DRUGS (2)
  1. REMICADE [Suspect]
     Route: 042
     Dates: start: 20090218, end: 20090302
  2. REMICADE [Suspect]
     Indication: CROHN'S DISEASE
     Route: 042
     Dates: start: 20090218, end: 20090302

REACTIONS (4)
  - DIZZINESS [None]
  - MALAISE [None]
  - PRURITUS GENERALISED [None]
  - VISUAL IMPAIRMENT [None]
